FAERS Safety Report 6618731-1 (Version None)
Quarter: 2010Q1

REPORT INFORMATION
  Report Type: 
  Country: None (occurrence: None)
  Receive Date: 20100308
  Receipt Date: 20100222
  Transmission Date: 20100710
  Serious: Yes (Hospitalization)
  Sender: FDA-Public Use
  Company Number: US-ELI_LILLY_AND_COMPANY-US201002006991

PATIENT
  Sex: Female

DRUGS (3)
  1. FORTEO [Suspect]
     Dosage: UNK, UNK
     Dates: end: 20100212
  2. FORTEO [Suspect]
     Dosage: UNK, UNK
     Dates: start: 20100215
  3. OXYCODONE HCL [Concomitant]

REACTIONS (6)
  - ASTHENIA [None]
  - DIZZINESS [None]
  - DRUG DOSE OMISSION [None]
  - DRUG THERAPY CHANGED [None]
  - FATIGUE [None]
  - MUSCLE SPASMS [None]
